FAERS Safety Report 25829862 (Version 1)
Quarter: 2025Q3

REPORT INFORMATION
  Report Type: Spontaneous
  Country: US (occurrence: US)
  Receive Date: 20250922
  Receipt Date: 20250922
  Transmission Date: 20251021
  Serious: No
  Sender: APOTEX
  Company Number: US-APOTEX-2025AP029584

PATIENT
  Sex: Female

DRUGS (1)
  1. TERIPARATIDE [Suspect]
     Active Substance: TERIPARATIDE
     Indication: Osteoporosis
     Route: 065

REACTIONS (5)
  - Product dose omission issue [Unknown]
  - Product substitution issue [Unknown]
  - Liquid product physical issue [Unknown]
  - Product quality issue [Unknown]
  - Drug ineffective [Unknown]
